FAERS Safety Report 18365970 (Version 1)
Quarter: 2020Q4

REPORT INFORMATION
  Report Type: Spontaneous
  Country: US (occurrence: US)
  Receive Date: 20201009
  Receipt Date: 20201009
  Transmission Date: 20210114
  Serious: No
  Sender: FDA-Public Use
  Company Number: US-PFIZER INC-2020387530

PATIENT
  Age: 38 Year
  Sex: Female

DRUGS (3)
  1. SUTENT [Suspect]
     Active Substance: SUNITINIB MALATE
     Indication: MALIGNANT ASCITES
  2. SUTENT [Suspect]
     Active Substance: SUNITINIB MALATE
     Indication: MALIGNANT PLEURAL EFFUSION
  3. SUTENT [Suspect]
     Active Substance: SUNITINIB MALATE
     Indication: OVARIAN CANCER
     Dosage: 37.5 MG, DAILY(42-DAY SUPPLY)

REACTIONS (3)
  - Neoplasm recurrence [Unknown]
  - Product use in unapproved indication [Unknown]
  - Off label use [Unknown]
